FAERS Safety Report 15339074 (Version 1)
Quarter: 2018Q3

REPORT INFORMATION
  Report Type: Spontaneous
  Country: US (occurrence: US)
  Receive Date: 20180831
  Receipt Date: 20180831
  Transmission Date: 20181010
  Serious: Yes (Other)
  Sender: FDA-Public Use
  Company Number: US-WEST-WARD PHARMACEUTICALS CORP.-US-H14001-18-04984?

PATIENT
  Age: 73 Year
  Sex: Female

DRUGS (17)
  1. DULOXETINE. [Concomitant]
     Active Substance: DULOXETINE
     Indication: PAIN MANAGEMENT
     Route: 065
  2. GABAPENTIN. [Concomitant]
     Active Substance: GABAPENTIN
     Indication: PAIN MANAGEMENT
     Route: 065
  3. OXYCODONE [Suspect]
     Active Substance: OXYCODONE
     Indication: PAIN MANAGEMENT
     Route: 065
  4. OXYCODONE [Suspect]
     Active Substance: OXYCODONE
     Indication: MUSCLE SPASMS
     Route: 065
  5. BACLOFEN. [Suspect]
     Active Substance: BACLOFEN
     Indication: MUSCLE SPASMS
  6. DIAZEPAM. [Suspect]
     Active Substance: DIAZEPAM
     Indication: PAIN MANAGEMENT
     Route: 065
  7. HYDROMORPHONE [Suspect]
     Active Substance: HYDROMORPHONE
     Indication: PAIN MANAGEMENT
     Route: 037
  8. GABAPENTIN. [Concomitant]
     Active Substance: GABAPENTIN
     Indication: MUSCLE SPASMS
  9. HYDROMORPHONE [Suspect]
     Active Substance: HYDROMORPHONE
     Indication: MUSCLE SPASMS
  10. ACETAMINOPHEN. [Suspect]
     Active Substance: ACETAMINOPHEN
     Indication: PAIN MANAGEMENT
     Route: 065
  11. BACLOFEN. [Suspect]
     Active Substance: BACLOFEN
     Indication: PAIN MANAGEMENT
     Route: 065
  12. DIAZEPAM. [Suspect]
     Active Substance: DIAZEPAM
     Indication: MUSCLE SPASMS
     Route: 065
  13. DIAZEPAM. [Suspect]
     Active Substance: DIAZEPAM
     Route: 065
  14. ACETAMINOPHEN. [Suspect]
     Active Substance: ACETAMINOPHEN
     Indication: MUSCLE SPASMS
  15. DULOXETINE. [Concomitant]
     Active Substance: DULOXETINE
     Indication: MUSCLE SPASMS
  16. TRAZODONE [Concomitant]
     Active Substance: TRAZODONE HYDROCHLORIDE
     Indication: PAIN MANAGEMENT
     Route: 065
  17. TRAZODONE [Concomitant]
     Active Substance: TRAZODONE HYDROCHLORIDE
     Indication: MUSCLE SPASMS

REACTIONS (3)
  - Muscle spasms [Unknown]
  - Cerebrovascular accident [Unknown]
  - Somnolence [Unknown]
